FAERS Safety Report 18265015 (Version 1)
Quarter: 2020Q3

REPORT INFORMATION
  Report Type: Report from Study
  Country: US (occurrence: US)
  Receive Date: 20200914
  Receipt Date: 20200914
  Transmission Date: 20201103
  Serious: Yes (Hospitalization, Other)
  Sender: FDA-Public Use
  Company Number: US-JNJFOC-A-NJ2018-181392

PATIENT
  Age: 64 Year
  Sex: Female
  Weight: 54.42 kg

DRUGS (7)
  1. XARELTO [Concomitant]
     Active Substance: RIVAROXABAN
  2. DILTIAZEM. [Concomitant]
     Active Substance: DILTIAZEM
  3. TADALAFIL. [Concomitant]
     Active Substance: TADALAFIL
  4. ORENITRAM [Concomitant]
     Active Substance: TREPROSTINIL
  5. OPSUMIT [Suspect]
     Active Substance: MACITENTAN
     Indication: PULMONARY HYPERTENSION
     Dosage: 10 MG, QD
     Route: 048
     Dates: start: 20190117
  6. TORSEMIDE. [Concomitant]
     Active Substance: TORSEMIDE
     Dosage: UNK
     Dates: start: 20181113
  7. ELIQUIS [Concomitant]
     Active Substance: APIXABAN

REACTIONS (11)
  - Product dose omission issue [Unknown]
  - Hospitalisation [Unknown]
  - Cardiac failure congestive [Recovering/Resolving]
  - Fluid overload [Unknown]
  - Head injury [Unknown]
  - Chest injury [Unknown]
  - Fall [Unknown]
  - Ear injury [Unknown]
  - Pulmonary oedema [Recovering/Resolving]
  - Fluid retention [Not Recovered/Not Resolved]
  - Pleural effusion [Unknown]

NARRATIVE: CASE EVENT DATE: 20190311
